FAERS Safety Report 8646005 (Version 6)
Quarter: 2013Q2

REPORT INFORMATION
  Report Type: Spontaneous
  Country: US (occurrence: US)
  Receive Date: 20120702
  Receipt Date: 20130514
  Transmission Date: 20140414
  Serious: Yes (Hospitalization, Disabling, Other)
  Sender: FDA-Public Use
  Company Number: US-009507513-1206USA04686

PATIENT
  Sex: Female
  Weight: 83.9 kg

DRUGS (11)
  1. FOSAMAX [Suspect]
     Indication: OSTEOPOROSIS
     Dosage: 5 MG QD
     Route: 048
     Dates: start: 19991014, end: 200105
  2. FOSAMAX [Suspect]
     Indication: OSTEOPENIA
     Dosage: 35 MG QW
     Route: 048
     Dates: start: 20010524
  3. FOSAMAX [Suspect]
     Indication: BONE DENSITY DECREASED
     Dosage: 70 MG QW
     Route: 048
     Dates: start: 20011126, end: 200804
  4. FOSAMAX [Suspect]
     Dosage: 70 MG, QD
     Route: 048
  5. FOSAMAX [Suspect]
     Dosage: 70 MG QW
     Route: 048
     Dates: start: 20080405
  6. CALCIUM (UNSPECIFIED) [Concomitant]
     Indication: BONE DENSITY DECREASED
     Dosage: 500 MG, BID
     Dates: start: 1980
  7. ESTROGENS (UNSPECIFIED) [Concomitant]
     Indication: POSTMENOPAUSE
     Dosage: UNK
     Dates: start: 200108
  8. VITAMINS (UNSPECIFIED) [Concomitant]
     Dosage: UNK
     Dates: start: 1980
  9. TIMOLOL [Concomitant]
     Indication: GLAUCOMA
     Dosage: UNK
     Route: 047
     Dates: start: 1993
  10. GLYBURIDE [Concomitant]
     Indication: TYPE 2 DIABETES MELLITUS
     Dosage: UNK
     Dates: start: 1983
  11. METFORMIN [Concomitant]
     Indication: TYPE 2 DIABETES MELLITUS
     Dosage: UNK
     Dates: start: 1983

REACTIONS (58)
  - Femur fracture [Not Recovered/Not Resolved]
  - Fistula [Unknown]
  - Osteomyelitis [Unknown]
  - Low turnover osteopathy [Not Recovered/Not Resolved]
  - Osteoporosis [Not Recovered/Not Resolved]
  - Pleural effusion [Unknown]
  - Stress fracture [Not Recovered/Not Resolved]
  - Intervertebral discitis [Unknown]
  - Femur fracture [Not Recovered/Not Resolved]
  - Large intestine perforation [Recovered/Resolved]
  - Cardiac failure congestive [Unknown]
  - Colostomy [Unknown]
  - Metabolic alkalosis [Unknown]
  - Atrial fibrillation [Unknown]
  - Cardiac failure congestive [Unknown]
  - Anaemia postoperative [Unknown]
  - Haemorrhage intracranial [Unknown]
  - Hip surgery [Unknown]
  - Pathological fracture [Unknown]
  - Open reduction of fracture [Unknown]
  - Generalised oedema [Unknown]
  - Hypokalaemia [Unknown]
  - Fistula [Unknown]
  - Fall [Unknown]
  - Pleural effusion [Unknown]
  - Leukocytosis [Recovering/Resolving]
  - Joint swelling [Unknown]
  - Back pain [Unknown]
  - Abdominal pain [Recovered/Resolved]
  - Essential hypertension [Not Recovered/Not Resolved]
  - Anaemia [Unknown]
  - Fall [Unknown]
  - Anxiety disorder [Unknown]
  - Hyperlipidaemia [Unknown]
  - Osteoarthritis [Unknown]
  - Intervertebral disc degeneration [Not Recovered/Not Resolved]
  - Intervertebral disc protrusion [Unknown]
  - Balance disorder [Unknown]
  - Diverticulitis [Unknown]
  - Head injury [Unknown]
  - Large intestine polyp [Recovered/Resolved]
  - Colon polypectomy [Unknown]
  - Atrial fibrillation [Unknown]
  - Hallucination [Unknown]
  - Hyperkeratosis [Unknown]
  - Diabetic neuropathy [Not Recovered/Not Resolved]
  - Lumbar radiculopathy [Not Recovered/Not Resolved]
  - Cerumen impaction [Unknown]
  - Cerumen removal [Unknown]
  - Adverse drug reaction [Unknown]
  - Rotator cuff syndrome [Unknown]
  - Muscle strain [Not Recovered/Not Resolved]
  - Pain [Unknown]
  - Fall [Unknown]
  - Asthenia [Unknown]
  - Back pain [Not Recovered/Not Resolved]
  - Overdose [Unknown]
  - Pain in extremity [Unknown]
